FAERS Safety Report 6153132-4 (Version None)
Quarter: 2009Q2

REPORT INFORMATION
  Report Type: 
  Country: None (occurrence: None)
  Receive Date: 20090409
  Receipt Date: 20090401
  Transmission Date: 20091009
  Serious: Yes (Life-Threatening)
  Sender: FDA-Public Use
  Company Number: GXKR2009SI03444

PATIENT
  Age: 78 Year
  Sex: Female

DRUGS (4)
  1. VERAPAMIL [Suspect]
     Indication: TACHYCARDIA
     Dosage: 80 MG, ORAL
     Route: 048
  2. ENALAPRIL MALEATE [Concomitant]
  3. FUROSEMIDE [Concomitant]
  4. DIGOXIN [Concomitant]

REACTIONS (13)
  - ANURIA [None]
  - CARDIOGENIC SHOCK [None]
  - CARDIOMEGALY [None]
  - DRUG LEVEL INCREASED [None]
  - HEART RATE DECREASED [None]
  - HYDROTHORAX [None]
  - LOSS OF CONSCIOUSNESS [None]
  - MECHANICAL VENTILATION [None]
  - MITRAL VALVE INCOMPETENCE [None]
  - PULMONARY CONGESTION [None]
  - PULMONARY HYPERTENSION [None]
  - RESPIRATORY ARREST [None]
  - VENTRICULAR DYSFUNCTION [None]
